FAERS Safety Report 22659262 (Version 1)
Quarter: 2023Q2

REPORT INFORMATION
  Report Type: Report from Study
  Country: US (occurrence: US)
  Receive Date: 20230630
  Receipt Date: 20230630
  Transmission Date: 20230722
  Serious: No
  Sender: FDA-Public Use
  Company Number: US-002147023-NVSC2023US146896

PATIENT
  Sex: Female

DRUGS (2)
  1. LEQVIO [Suspect]
     Active Substance: INCLISIRAN SODIUM
     Indication: Product used for unknown indication
     Dosage: UNK
     Route: 058
     Dates: start: 20230525
  2. METOPROLOL [Concomitant]
     Active Substance: METOPROLOL
     Indication: Product used for unknown indication
     Dosage: UNK
     Route: 065

REACTIONS (13)
  - Neuralgia [Unknown]
  - Head discomfort [Unknown]
  - Facial discomfort [Unknown]
  - Migraine [Unknown]
  - Ear disorder [Unknown]
  - Dyspnoea [Unknown]
  - Asthenia [Unknown]
  - Aortic disorder [Unknown]
  - Anxiety [Unknown]
  - Urine analysis abnormal [Unknown]
  - Nasopharyngitis [Unknown]
  - Diarrhoea [Unknown]
  - Injection site pain [Unknown]
